FAERS Safety Report 9771108 (Version 10)
Quarter: 2015Q3

REPORT INFORMATION
  Report Type: Report from Study
  Country: US (occurrence: US)
  Receive Date: 20131218
  Receipt Date: 20150804
  Transmission Date: 20151125
  Serious: Yes (Hospitalization, Other)
  Sender: FDA-Public Use
  Company Number: US-ALEXION PHARMACEUTICALS INC.-A201304291

PATIENT

DRUGS (4)
  1. SOLIRIS [Suspect]
     Active Substance: ECULIZUMAB
     Dosage: 1200 MG, Q2W
     Route: 042
     Dates: start: 20120907
  2. POTASSIUM                          /00031402/ [Concomitant]
     Active Substance: POTASSIUM
     Indication: SUPPLEMENTATION THERAPY
     Dosage: UNK UNK, QD
     Route: 065
     Dates: start: 20120913
  3. PHOSPHORUS [Concomitant]
     Active Substance: PHOSPHORUS
     Indication: SUPPLEMENTATION THERAPY
     Dosage: UNK UNK, QD
     Route: 065
  4. SOLIRIS [Suspect]
     Active Substance: ECULIZUMAB
     Indication: HAEMOLYTIC URAEMIC SYNDROME
     Dosage: UNK
     Route: 042

REACTIONS (11)
  - Renal transplant torsion [Unknown]
  - Nausea [Recovered/Resolved]
  - Renal impairment [Not Recovered/Not Resolved]
  - Complications of transplanted kidney [Unknown]
  - Blood creatinine increased [Unknown]
  - Vomiting [Recovered/Resolved]
  - Hip fracture [Unknown]
  - Blood pressure abnormal [Unknown]
  - Blood creatinine increased [Recovered/Resolved]
  - Arterial thrombosis [Not Recovered/Not Resolved]
  - Dehydration [Recovered/Resolved]

NARRATIVE: CASE EVENT DATE: 201212
